FAERS Safety Report 9756620 (Version 1)
Quarter: 2013Q4

REPORT INFORMATION
  Report Type: Spontaneous
  Country: US (occurrence: US)
  Receive Date: 20131213
  Receipt Date: 20131213
  Transmission Date: 20140711
  Serious: Yes (Death, Other)
  Sender: FDA-Public Use
  Company Number: US-FRI-1000052236

PATIENT
  Age: 89 Year
  Sex: Male

DRUGS (2)
  1. NAMENDA XR [Suspect]
     Indication: DEMENTIA
     Dosage: 28 MG
     Route: 048
     Dates: start: 2013, end: 20131012
  2. NAMENDA [Suspect]
     Indication: DEMENTIA
     Dosage: 10 MG
     Route: 048
     Dates: start: 20131013, end: 20131029

REACTIONS (2)
  - General physical health deterioration [Fatal]
  - Convulsion [Recovered/Resolved]
